FAERS Safety Report 9126858 (Version 1)
Quarter: 2013Q1

REPORT INFORMATION
  Report Type: Spontaneous
  Country: DE (occurrence: DE)
  Receive Date: 20130228
  Receipt Date: 20130228
  Transmission Date: 20140127
  Serious: Yes (Other)
  Sender: FDA-Public Use
  Company Number: DE-BRISTOL-MYERS SQUIBB COMPANY-17335050

PATIENT
  Age: 67 Year
  Sex: Female
  Weight: 70 kg

DRUGS (2)
  1. ORENCIA FOR INJ [Suspect]
     Indication: POLYARTHRITIS
     Route: 042
     Dates: start: 201111
  2. ORENCIA FOR INJ [Suspect]
     Indication: RHEUMATOID ARTHRITIS
     Route: 042
     Dates: start: 201111

REACTIONS (2)
  - Alopecia [Not Recovered/Not Resolved]
  - Pruritus [Unknown]
